FAERS Safety Report 23364517 (Version 1)
Quarter: 2024Q1

REPORT INFORMATION
  Report Type: Spontaneous
  Country: CN (occurrence: CN)
  Receive Date: 20240104
  Receipt Date: 20240104
  Transmission Date: 20240409
  Serious: Yes (Other)
  Sender: FDA-Public Use
  Company Number: CN-UCBSA-2023061642

PATIENT

DRUGS (2)
  1. KEPPRA [Suspect]
     Active Substance: LEVETIRACETAM
     Indication: Product used for unknown indication
     Dosage: 0.25 GRAM, 30 TABLETS
  2. KEPPRA [Suspect]
     Active Substance: LEVETIRACETAM
     Dosage: 0.25 GRAM, 30 TABLETS
     Dates: start: 20231226

REACTIONS (2)
  - Seizure [Recovering/Resolving]
  - Therapeutic product ineffective [Unknown]

NARRATIVE: CASE EVENT DATE: 20231226
